FAERS Safety Report 8108159 (Version 2)
Quarter: 2013Q3

REPORT INFORMATION
  Report Type: Spontaneous
  Country: US (occurrence: US)
  Receive Date: 20110826
  Receipt Date: 20130927
  Transmission Date: 20140515
  Serious: No
  Sender: FDA-Public Use
  Company Number: US-BRISTOL-MYERS SQUIBB COMPANY-15864093

PATIENT
  Age: 73 Year
  Sex: Female
  Weight: 72 kg

DRUGS (8)
  1. ONGLYZA TABS 5 MG [Suspect]
     Indication: DIABETES MELLITUS
     Dosage: LOT#2A6061A,EXP DT:JAN2015
     Route: 048
     Dates: start: 20110611
  2. ONGLYZA TABS 5 MG [Suspect]
     Indication: BLOOD GLUCOSE INCREASED
     Dosage: LOT#2A6061A,EXP DT:JAN2015
     Route: 048
     Dates: start: 20110611
  3. METFORMIN [Concomitant]
     Dosage: METFORMIN ER BEFORE LUNCH AND DINNER
  4. STARLIX [Concomitant]
     Dosage: BEFORE BREAKFAST, LUNCH AND DINNER
  5. MULTIVITAMIN [Concomitant]
  6. EVISTA [Concomitant]
  7. OMEPRAZOLE [Concomitant]
  8. FUROSEMIDE [Concomitant]

REACTIONS (2)
  - Drug ineffective [Unknown]
  - Pollakiuria [Unknown]
